FAERS Safety Report 7699368-2 (Version None)
Quarter: 2011Q3

REPORT INFORMATION
  Report Type: 
  Country: None (occurrence: None)
  Receive Date: 20110819
  Receipt Date: 20110811
  Transmission Date: 20111222
  Serious: Yes (Other)
  Sender: FDA-Public Use
  Company Number: US-BAYER-2011-072128

PATIENT
  Sex: Female

DRUGS (1)
  1. YAZ [Suspect]
     Indication: HORMONE SUPPRESSION THERAPY
     Dosage: UNK
     Dates: start: 20090701

REACTIONS (3)
  - THROMBOSIS [None]
  - SWELLING [None]
  - PAIN [None]
